FAERS Safety Report 11641053 (Version 5)
Quarter: 2018Q1

REPORT INFORMATION
  Report Type: Report from Study
  Country: JP (occurrence: JP)
  Receive Date: 20151019
  Receipt Date: 20180314
  Transmission Date: 20180508
  Serious: Yes (Death, Hospitalization, Other)
  Sender: FDA-Public Use
  Company Number: JP-INCYTE CORPORATION-2015IN005290

PATIENT

DRUGS (11)
  1. JAKAVI [Suspect]
     Active Substance: RUXOLITINIB
     Indication: MYELOFIBROSIS
     Dosage: 5 MG, QD
     Route: 048
     Dates: start: 20150424, end: 20150521
  2. HYDREA [Concomitant]
     Active Substance: HYDROXYUREA
     Indication: MYELOFIBROSIS
     Dosage: 1000 MG, UNK
     Route: 048
     Dates: end: 20150407
  3. HYDREA [Concomitant]
     Active Substance: HYDROXYUREA
     Dosage: 3000 MG, UNK
     Route: 048
     Dates: end: 20150423
  4. HYDREA [Concomitant]
     Active Substance: HYDROXYUREA
     Dosage: 1000 MG, UNK
     Route: 048
  5. JAKAVI [Suspect]
     Active Substance: RUXOLITINIB
     Dosage: 10 MG, BID
     Route: 048
     Dates: start: 20150818
  6. JAKAVI [Suspect]
     Active Substance: RUXOLITINIB
     Dosage: 7.5 MG, BID
     Route: 048
     Dates: start: 20150717, end: 20150817
  7. HYDREA [Concomitant]
     Active Substance: HYDROXYUREA
     Dosage: 2000 MG, UNK
     Route: 048
     Dates: end: 20150416
  8. VIDAZA [Concomitant]
     Active Substance: AZACITIDINE
     Indication: MYELOFIBROSIS
     Dosage: 140 MG, UNK
     Route: 065
     Dates: end: 20140529
  9. HYDREA [Concomitant]
     Active Substance: HYDROXYUREA
     Dosage: 2500 MG, UNK
     Route: 048
     Dates: end: 20150420
  10. HYDREA [Concomitant]
     Active Substance: HYDROXYUREA
     Dosage: 1000 MG, UNK
     Route: 048
     Dates: start: 20150918
  11. JAKAVI [Suspect]
     Active Substance: RUXOLITINIB
     Dosage: 5 MG, BID
     Route: 048
     Dates: start: 20150522, end: 20150716

REACTIONS (9)
  - Eosinophil count increased [Unknown]
  - Immune system disorder [Unknown]
  - Eosinophilic pneumonia [Fatal]
  - Concomitant disease aggravated [Unknown]
  - Pericarditis [Fatal]
  - Cardiac ventricular thrombosis [Fatal]
  - Cardiac failure congestive [Fatal]
  - Pneumonia cytomegaloviral [Fatal]
  - Myelofibrosis [Fatal]

NARRATIVE: CASE EVENT DATE: 20150730
